FAERS Safety Report 14749719 (Version 2)
Quarter: 2018Q2

REPORT INFORMATION
  Report Type: Spontaneous
  Country: US (occurrence: US)
  Receive Date: 20180412
  Receipt Date: 20180414
  Transmission Date: 20180711
  Serious: No
  Sender: FDA-Public Use
  Company Number: US-B.I. PHARMACEUTICALS,INC./RIDGEFIELD-2018-BI-019427

PATIENT
  Age: 72 Year
  Sex: Female

DRUGS (2)
  1. PRADAXA [Suspect]
     Active Substance: DABIGATRAN ETEXILATE MESYLATE
     Indication: ATRIAL FIBRILLATION
     Dosage: ADMINISTRATION CORRECT? YES
     Route: 048
     Dates: start: 201803
  2. SERTRALINE [Concomitant]
     Active Substance: SERTRALINE HYDROCHLORIDE
     Indication: POST-TRAUMATIC STRESS DISORDER
     Route: 048

REACTIONS (3)
  - Stress [Not Recovered/Not Resolved]
  - Anal incontinence [Not Recovered/Not Resolved]
  - Irritable bowel syndrome [Not Recovered/Not Resolved]

NARRATIVE: CASE EVENT DATE: 201804
